FAERS Safety Report 5383432-7 (Version None)
Quarter: 2007Q3

REPORT INFORMATION
  Report Type: 
  Country: None (occurrence: None)
  Receive Date: 20070710
  Receipt Date: 20070629
  Transmission Date: 20080115
  Serious: Yes (Hospitalization)
  Sender: FDA-Public Use
  Company Number: HQWYE956128MAR07

PATIENT
  Age: 66 Year
  Sex: Male

DRUGS (6)
  1. AVLOCARDYL LP [Suspect]
     Route: 048
  2. FLUOXETINE [Suspect]
     Dosage: UNSPECIFIED
     Route: 048
     Dates: end: 20070325
  3. FLUOXETINE [Suspect]
     Route: 048
     Dates: start: 20070326
  4. TERCIAN [Suspect]
     Route: 048
     Dates: end: 20070315
  5. ZOLPIDEM TARTRATE [Suspect]
     Dosage: ONCE DAILY
     Route: 048
  6. LORAZEPAM [Suspect]
     Route: 048

REACTIONS (1)
  - PARKINSONISM [None]
